FAERS Safety Report 23394494 (Version 1)
Quarter: 2024Q1

REPORT INFORMATION
  Report Type: Spontaneous
  Country: US (occurrence: US)
  Receive Date: 20240111
  Receipt Date: 20240111
  Transmission Date: 20240410
  Serious: No
  Sender: FDA-Public Use
  Company Number: US-SA-SAC20240105001251

PATIENT
  Age: 41 Year
  Sex: Female

DRUGS (1)
  1. DUPIXENT [Suspect]
     Active Substance: DUPILUMAB
     Indication: Dermatitis atopic
     Dosage: 300 MG, QOW
     Route: 058
     Dates: start: 20220527

REACTIONS (6)
  - Dermatitis atopic [Unknown]
  - Skin discomfort [Unknown]
  - Rash [Unknown]
  - Pruritus [Unknown]
  - Sleep disorder due to a general medical condition [Unknown]
  - Drug ineffective [Unknown]

NARRATIVE: CASE EVENT DATE: 20231201
